FAERS Safety Report 13545212 (Version 1)
Quarter: 2017Q2

REPORT INFORMATION
  Report Type: Spontaneous
  Country: US (occurrence: US)
  Receive Date: 20170515
  Receipt Date: 20170515
  Transmission Date: 20170830
  Serious: Yes (Death)
  Sender: FDA-Public Use
  Company Number: US-ROCHE-1008861

PATIENT
  Sex: Female

DRUGS (23)
  1. FOLINIC ACID [Concomitant]
     Active Substance: LEUCOVORIN
     Indication: COLORECTAL CANCER
  2. OYSTER SHELL CALCIUM [Concomitant]
     Active Substance: CALCIUM
  3. AVASTIN [Suspect]
     Active Substance: BEVACIZUMAB
     Indication: COLORECTAL CANCER
     Route: 065
  4. OXALIPLATIN. [Concomitant]
     Active Substance: OXALIPLATIN
     Indication: COLORECTAL CANCER
  5. ZANAFLEX [Concomitant]
     Active Substance: TIZANIDINE HYDROCHLORIDE
  6. FLUOROURACIL. [Concomitant]
     Active Substance: FLUOROURACIL
     Indication: COLORECTAL CANCER
  7. LASIX [Concomitant]
     Active Substance: FUROSEMIDE
  8. PREDNISONE. [Concomitant]
     Active Substance: PREDNISONE
  9. ALBUTEROL. [Concomitant]
     Active Substance: ALBUTEROL
     Dosage: INHALER
     Route: 065
  10. TYLENOL #3 (UNITED STATES) [Concomitant]
  11. ZOCOR [Concomitant]
     Active Substance: SIMVASTATIN
  12. ALDACTONE [Concomitant]
     Active Substance: SPIRONOLACTONE
  13. HYDROCHLOROTHIAZIDE/TRIAMTERENE [Concomitant]
     Active Substance: HYDROCHLOROTHIAZIDE\TRIAMTERENE
  14. TOPROL XL [Concomitant]
     Active Substance: METOPROLOL SUCCINATE
  15. ADVAIR HFA [Concomitant]
     Active Substance: FLUTICASONE PROPIONATE\SALMETEROL XINAFOATE
  16. PRILOSEC [Concomitant]
     Active Substance: OMEPRAZOLE MAGNESIUM
  17. FOSAMAX [Concomitant]
     Active Substance: ALENDRONATE SODIUM
  18. ZESTRIL [Concomitant]
     Active Substance: LISINOPRIL
  19. DUONEB [Concomitant]
     Active Substance: ALBUTEROL SULFATE\IPRATROPIUM BROMIDE
  20. FERROUS SULFATE. [Concomitant]
     Active Substance: FERROUS SULFATE
  21. COLCHICINE. [Concomitant]
     Active Substance: COLCHICINE
  22. MONTELUKAST [Concomitant]
     Active Substance: MONTELUKAST SODIUM
  23. THEOPHYLLINE [Concomitant]
     Active Substance: THEOPHYLLINE ANHYDROUS

REACTIONS (1)
  - Haematemesis [Fatal]
